FAERS Safety Report 4815324-3 (Version None)
Quarter: 2005Q4

REPORT INFORMATION
  Report Type: 
  Country: None (occurrence: None)
  Receive Date: 20051028
  Receipt Date: 20050817
  Transmission Date: 20060501
  Serious: Yes (Death, Hospitalization)
  Sender: FDA-Public Use
  Company Number: US-MERCK-0508USA03269

PATIENT
  Age: 44 Year
  Sex: Female

DRUGS (4)
  1. VIOXX [Suspect]
     Indication: CANCER PAIN
     Route: 048
     Dates: start: 20010101, end: 20030811
  2. NAPROXEN [Concomitant]
     Indication: PAIN
     Route: 065
     Dates: start: 20010101, end: 20030811
  3. COUMADIN [Concomitant]
     Indication: ANTICOAGULANT THERAPY
     Route: 065
  4. WARFARIN [Concomitant]
     Indication: ANTICOAGULANT THERAPY
     Route: 065

REACTIONS (2)
  - CEREBROVASCULAR ACCIDENT [None]
  - CHEST PAIN [None]
